FAERS Safety Report 19926244 (Version 2)
Quarter: 2021Q4

REPORT INFORMATION
  Report Type: Spontaneous
  Country: US (occurrence: US)
  Receive Date: 20211006
  Receipt Date: 20211111
  Transmission Date: 20220303
  Serious: No
  Sender: FDA-Public Use
  Company Number: US-BAUSCH-BL-2021-033175

PATIENT
  Age: 79 Year
  Sex: Female
  Weight: 53.118 kg

DRUGS (3)
  1. LOTEMAX SM [Suspect]
     Active Substance: LOTEPREDNOL ETABONATE
     Indication: Eye pruritus
     Dosage: STOPPED USING LOTEMAX AND IT WAS FOR A MONTH ONLY THAT SHE USED IT.
     Route: 047
     Dates: start: 202109, end: 202110
  2. LOTEMAX SM [Suspect]
     Active Substance: LOTEPREDNOL ETABONATE
     Indication: Product use in unapproved indication
  3. MINERALS\VITAMINS [Concomitant]
     Active Substance: MINERALS\VITAMINS
     Indication: Product used for unknown indication

REACTIONS (7)
  - Periorbital pain [Not Recovered/Not Resolved]
  - Eyelid margin crusting [Unknown]
  - Dyschromatopsia [Unknown]
  - Product use in unapproved indication [Unknown]
  - Drug delivery system malfunction [Unknown]
  - Incorrect dose administered [Unknown]
  - Product colour issue [Unknown]

NARRATIVE: CASE EVENT DATE: 20210901
